FAERS Safety Report 15962652 (Version 1)
Quarter: 2019Q1

REPORT INFORMATION
  Report Type: Spontaneous
  Country: US (occurrence: US)
  Receive Date: 20190214
  Receipt Date: 20190214
  Transmission Date: 20190417
  Serious: No
  Sender: FDA-Public Use
  Company Number: US-BAUSCH-BL-2019-003099

PATIENT
  Age: 37 Year
  Sex: Female
  Weight: 54.03 kg

DRUGS (3)
  1. NEOMYCIN AND POLYMYXIN B SULFATES AND HYDROCORTISONE [Suspect]
     Active Substance: HYDROCORTISONE\NEOMYCIN SULFATE\POLYMYXIN B SULFATE
     Indication: EAR DISCOMFORT
     Dosage: ADMINISTERED 6 DROPS TOTAL IN THE RIGHT EAR AND STOPPED.
     Route: 001
     Dates: start: 20190117, end: 20190122
  2. CETRIZINE [Concomitant]
     Active Substance: CETIRIZINE HYDROCHLORIDE
     Indication: PRODUCT USED FOR UNKNOWN INDICATION
  3. NEOMYCIN AND POLYMYXIN B SULFATES AND HYDROCORTISONE [Suspect]
     Active Substance: HYDROCORTISONE\NEOMYCIN SULFATE\POLYMYXIN B SULFATE
     Indication: EAR DISCOMFORT

REACTIONS (4)
  - Product administered at inappropriate site [Recovered/Resolved]
  - Pruritus [Not Recovered/Not Resolved]
  - Ear discomfort [Not Recovered/Not Resolved]
  - Hypoacusis [Not Recovered/Not Resolved]

NARRATIVE: CASE EVENT DATE: 201901
